FAERS Safety Report 8573821-1 (Version None)
Quarter: 2012Q3

REPORT INFORMATION
  Report Type: 
  Country: None (occurrence: None)
  Receive Date: 20120806
  Receipt Date: 20110810
  Transmission Date: 20120928
  Serious: No
  Sender: FDA-Public Use
  Company Number: US-GLAXOSMITHKLINE-A0940368A

PATIENT
  Age: 73 Year
  Sex: Female

DRUGS (8)
  1. SIMVASTATIN [Concomitant]
  2. SINGULAIR [Concomitant]
  3. PROAIR HFA [Concomitant]
  4. LISINOPRIL [Concomitant]
  5. NOVOLOG [Concomitant]
  6. FLUTICASONE PROPIONATE [Suspect]
     Indication: ASTHMA
     Dosage: 1PUFF TWICE PER DAY
     Route: 055
     Dates: start: 20110727, end: 20110809
  7. TRICOR [Concomitant]
  8. LANTUS [Concomitant]

REACTIONS (3)
  - APHONIA [None]
  - DYSPHONIA [None]
  - OROPHARYNGEAL PAIN [None]
